FAERS Safety Report 8977915 (Version 1)
Quarter: 2012Q4

REPORT INFORMATION
  Report Type: 
  Country: US (occurrence: US)
  Receive Date: 20121219
  Receipt Date: 20121219
  Transmission Date: 20130627
  Serious: Yes (Other)
  Sender: FDA-Public Use
  Company Number: US-SANOFI-AVENTIS-2012SA090730

PATIENT
  Age: 73 Year
  Sex: Female

DRUGS (7)
  1. PLAVIX [Suspect]
     Route: 048
     Dates: start: 2012
  2. XARELTO [Suspect]
     Indication: ATRIAL FIBRILLATION
     Route: 048
     Dates: start: 201111, end: 201201
  3. XARELTO [Suspect]
     Indication: CEREBROVASCULAR ACCIDENT PROPHYLAXIS
     Route: 048
     Dates: start: 201111, end: 201201
  4. XARELTO [Suspect]
     Indication: ATRIAL FIBRILLATION
     Route: 048
     Dates: start: 201211, end: 201211
  5. XARELTO [Suspect]
     Indication: CEREBROVASCULAR ACCIDENT PROPHYLAXIS
     Route: 048
     Dates: start: 201211, end: 201211
  6. XARELTO [Suspect]
     Indication: ATRIAL FIBRILLATION
     Dosage: continued to take one half tablet.
     Route: 048
     Dates: start: 201211
  7. XARELTO [Suspect]
     Indication: CEREBROVASCULAR ACCIDENT PROPHYLAXIS
     Dosage: continued to take one half tablet.
     Route: 048
     Dates: start: 201211

REACTIONS (6)
  - Tooth extraction [Unknown]
  - Abasia [Not Recovered/Not Resolved]
  - Fatigue [Not Recovered/Not Resolved]
  - Haemorrhage [Unknown]
  - Mouth haemorrhage [Unknown]
  - Dizziness [Not Recovered/Not Resolved]
